FAERS Safety Report 20311292 (Version 1)
Quarter: 2022Q1

REPORT INFORMATION
  Report Type: Spontaneous
  Country: CA (occurrence: CA)
  Receive Date: 20220107
  Receipt Date: 20220107
  Transmission Date: 20220424
  Serious: Yes (Other)
  Sender: FDA-Public Use
  Company Number: CA-TEVA-2021-CA-1996238

PATIENT
  Age: 49 Year
  Sex: Male

DRUGS (2)
  1. PREDNISONE [Suspect]
     Active Substance: PREDNISONE
     Route: 065
  2. INVOKANA [Suspect]
     Active Substance: CANAGLIFLOZIN
     Indication: Product used for unknown indication
     Route: 065

REACTIONS (3)
  - Diabetic ketoacidosis [Unknown]
  - Hypovolaemia [Unknown]
  - Syncope [Unknown]
